FAERS Safety Report 15723202 (Version 4)
Quarter: 2020Q1

REPORT INFORMATION
  Report Type: Spontaneous
  Country: US (occurrence: US)
  Receive Date: 20181214
  Receipt Date: 20200131
  Transmission Date: 20200409
  Serious: No
  Sender: FDA-Public Use
  Company Number: US-PFIZER INC-2018508904

PATIENT
  Age: 76 Year
  Sex: Female

DRUGS (1)
  1. XELJANZ [Suspect]
     Active Substance: TOFACITINIB CITRATE
     Dosage: 5 MG, ALTERNATE DAY (ONE PILL EVERY OTHER DAY)

REACTIONS (4)
  - Malaise [Unknown]
  - Pain [Unknown]
  - Intentional product misuse [Unknown]
  - Pain in extremity [Unknown]
